FAERS Safety Report 12892098 (Version 1)
Quarter: 2016Q4

REPORT INFORMATION
  Report Type: Spontaneous
  Country: US (occurrence: US)
  Receive Date: 20161028
  Receipt Date: 20161028
  Transmission Date: 20170207
  Serious: No
  Sender: FDA-Public Use
  Company Number: US-LEO PHARMA-244506

PATIENT
  Age: 73 Year
  Sex: Female

DRUGS (4)
  1. JANTOVEN [Concomitant]
     Active Substance: WARFARIN SODIUM
     Indication: ARRHYTHMIA
  2. PICATO [Suspect]
     Active Substance: INGENOL MEBUTATE
     Indication: PRECANCEROUS SKIN LESION
     Route: 061
     Dates: start: 20161024, end: 20161026
  3. LISINOPRIL. [Concomitant]
     Active Substance: LISINOPRIL
     Indication: HYPERTENSION
  4. BISOPROLOL [Concomitant]
     Active Substance: BISOPROLOL
     Indication: ARRHYTHMIA

REACTIONS (2)
  - Blister [Not Recovered/Not Resolved]
  - Drug administered at inappropriate site [Unknown]
